FAERS Safety Report 14195827 (Version 1)
Quarter: 2017Q4

REPORT INFORMATION
  Report Type: Spontaneous
  Country: US (occurrence: US)
  Receive Date: 20171116
  Receipt Date: 20171116
  Transmission Date: 20180321
  Serious: No
  Sender: FDA-Public Use
  Company Number: US-BAUSCH-BL-2017-000934

PATIENT
  Sex: Female

DRUGS (1)
  1. XENAZINE [Suspect]
     Active Substance: TETRABENAZINE
     Indication: CHOREA
     Dosage: 12.5MG 1 TABLET IN THE MORNING AND HALF TABLET IN THE EVENING
     Route: 048
     Dates: start: 20110816, end: 20170620

REACTIONS (5)
  - Feeding disorder [Unknown]
  - Fall [Unknown]
  - Drug administration error [Unknown]
  - Drug dose omission [Unknown]
  - Unevaluable event [Unknown]
